FAERS Safety Report 23324580 (Version 1)
Quarter: 2023Q4

REPORT INFORMATION
  Report Type: Report from Study
  Country: US (occurrence: US)
  Receive Date: 20231221
  Receipt Date: 20231221
  Transmission Date: 20240110
  Serious: Yes (Other)
  Sender: FDA-Public Use
  Company Number: US-ABBVIE-5432161

PATIENT
  Sex: Female

DRUGS (2)
  1. DUOPA [Suspect]
     Active Substance: CARBIDOPA\LEVODOPA
     Indication: Parkinson^s disease
     Route: 050
     Dates: start: 20210519
  2. DUOPA [Suspect]
     Active Substance: CARBIDOPA\LEVODOPA
     Route: 050
     Dates: start: 20201214

REACTIONS (9)
  - Oxygen therapy [Unknown]
  - Tremor [Not Recovered/Not Resolved]
  - Weight decreased [Unknown]
  - Unevaluable event [Not Recovered/Not Resolved]
  - Dysgraphia [Unknown]
  - Eye disorder [Unknown]
  - Multimorbidity [Unknown]
  - Interstitial lung disease [Not Recovered/Not Resolved]
  - Pneumonia bacterial [Not Recovered/Not Resolved]
